FAERS Safety Report 11168724 (Version 1)
Quarter: 2015Q2

REPORT INFORMATION
  Report Type: Spontaneous
  Country: GB (occurrence: GB)
  Receive Date: 20150605
  Receipt Date: 20150605
  Transmission Date: 20150821
  Serious: Yes (Hospitalization, Other)
  Sender: FDA-Public Use
  Company Number: GB-WATSON-2015-11130

PATIENT
  Age: 34 Year
  Sex: Male

DRUGS (5)
  1. MIRTAZAPINE (UNKNOWN) [Suspect]
     Active Substance: MIRTAZAPINE
     Indication: DEPRESSION
     Dosage: 30 MG, DAILY
     Route: 048
     Dates: end: 20150423
  2. CLOZARIL [Suspect]
     Active Substance: CLOZAPINE
     Indication: SCHIZOPHRENIA
     Dosage: 150 MG, DAILY
     Route: 048
     Dates: start: 20150324, end: 20150423
  3. LANSOPRAZOLE. [Concomitant]
     Active Substance: LANSOPRAZOLE
     Indication: GASTRIC DISORDER
     Dosage: 30 MG, DAILY
     Route: 048
  4. HYOSCINE HYDROBROMIDE (UNKNOWN) [Suspect]
     Active Substance: SCOPOLAMINE
     Indication: SALIVARY HYPERSECRETION
     Dosage: 300 ?G, DAILY
     Route: 048
     Dates: start: 20150403, end: 20150423
  5. NICORETTE [Suspect]
     Active Substance: NICOTINE
     Indication: NICOTINE DEPENDENCE
     Dosage: 14 MG, DAILY
     Route: 061
     Dates: start: 20150314, end: 20150507

REACTIONS (2)
  - Syncope [Recovered/Resolved]
  - Seizure [Recovered/Resolved]

NARRATIVE: CASE EVENT DATE: 20150410
